FAERS Safety Report 9111081 (Version 1)
Quarter: 2013Q1

REPORT INFORMATION
  Report Type: Spontaneous
  Country: US (occurrence: US)
  Receive Date: 20130219
  Receipt Date: 20130219
  Transmission Date: 20140127
  Serious: No
  Sender: FDA-Public Use
  Company Number: US-BRISTOL-MYERS SQUIBB COMPANY-17081472

PATIENT
  Age: 65 Year
  Sex: Female
  Weight: 61.22 kg

DRUGS (7)
  1. ABATACEPT SUBQ INJECTION 125MG/ML [Suspect]
     Dosage: 1DF: 125MG/1ML
     Route: 058
  2. LOSARTAN POTASSIUM [Concomitant]
     Dosage: TABS
  3. METFORMIN HCL TABS 500MG [Concomitant]
     Dosage: TABS
  4. VITAMIN E [Concomitant]
     Dosage: 1DF: 1000 UNITS, CAPS.
  5. FISH OIL [Concomitant]
     Dosage: CAP
  6. CALCIUM [Concomitant]
     Dosage: 1DF:500 DOSE NOT MENTIONED, TABS
  7. AMLODIPINE [Concomitant]
     Dosage: TABS

REACTIONS (2)
  - Nasopharyngitis [Unknown]
  - Blood pressure increased [Unknown]
